FAERS Safety Report 10648186 (Version 1)
Quarter: 2014Q4

REPORT INFORMATION
  Report Type: Spontaneous
  Country: US (occurrence: None)
  Receive Date: 20141211
  Receipt Date: 20141211
  Transmission Date: 20150529
  Serious: Yes (Disabling)
  Sender: FDA-Public Use
  Company Number: None

PATIENT
  Age: 51 Year
  Sex: Female
  Weight: 67.59 kg

DRUGS (1)
  1. LEVOFLOXACIN. [Suspect]
     Active Substance: LEVOFLOXACIN
     Indication: SINUSITIS
     Dosage: 1 PILL ONCE DAILY TAKEN BY MOUTH
     Route: 048

REACTIONS (14)
  - Asthenia [None]
  - Blood pressure increased [None]
  - Middle insomnia [None]
  - Insomnia [None]
  - Abdominal distension [None]
  - Arthralgia [None]
  - Dyspepsia [None]
  - Paraesthesia [None]
  - Dizziness [None]
  - Fungal infection [None]
  - Neuralgia [None]
  - Alopecia [None]
  - Vision blurred [None]
  - Palpitations [None]

NARRATIVE: CASE EVENT DATE: 20140113
